FAERS Safety Report 9685610 (Version 1)
Quarter: 2013Q4

REPORT INFORMATION
  Report Type: Spontaneous
  Country: US (occurrence: US)
  Receive Date: 20131113
  Receipt Date: 20131113
  Transmission Date: 20140711
  Serious: No
  Sender: FDA-Public Use
  Company Number: US-GLAXOSMITHKLINE-A1002492A

PATIENT
  Age: 76 Year
  Sex: Male

DRUGS (1)
  1. CARVEDILOL [Suspect]
     Indication: CARDIOMEGALY
     Route: 048
     Dates: start: 2011

REACTIONS (3)
  - Local swelling [Unknown]
  - Cyanosis [Unknown]
  - Pallor [Unknown]
